FAERS Safety Report 24291921 (Version 2)
Quarter: 2024Q3

REPORT INFORMATION
  Report Type: Spontaneous
  Country: CN (occurrence: CN)
  Receive Date: 20240906
  Receipt Date: 20240917
  Transmission Date: 20241016
  Serious: Yes (Other)
  Sender: SANOFI AVENTIS
  Company Number: CN-SA-2024SA253083

PATIENT
  Age: 91 Year
  Sex: Female

DRUGS (2)
  1. HYDROCHLOROTHIAZIDE\IRBESARTAN [Suspect]
     Active Substance: HYDROCHLOROTHIAZIDE\IRBESARTAN
     Indication: Cardiac failure
     Dosage: 150 MG, QD
     Route: 065
     Dates: start: 20240711, end: 20240712
  2. FUROSEMIDE [Suspect]
     Active Substance: FUROSEMIDE
     Indication: Cardiac failure
     Dosage: 20 MG, QD
     Route: 048
     Dates: start: 20240711, end: 20240714

REACTIONS (1)
  - Renal injury [Unknown]

NARRATIVE: CASE EVENT DATE: 20240714
